FAERS Safety Report 4475547-2 (Version None)
Quarter: 2004Q4

REPORT INFORMATION
  Report Type: 
  Country: None (occurrence: None)
  Receive Date: 20041015
  Receipt Date: 20041004
  Transmission Date: 20050328
  Serious: Yes (Death)
  Sender: FDA-Public Use
  Company Number: US-MERCK-0410USA00411

PATIENT
  Age: 71 Year
  Sex: Female

DRUGS (4)
  1. ALBUTEROL [Concomitant]
     Route: 055
  2. NORVASC [Concomitant]
     Route: 065
  3. VIOXX [Suspect]
     Route: 048
     Dates: start: 20040601
  4. DIOVAN [Concomitant]
     Route: 065

REACTIONS (1)
  - DEATH [None]
